FAERS Safety Report 12211455 (Version 1)
Quarter: 2016Q1

REPORT INFORMATION
  Report Type: Spontaneous
  Country: US (occurrence: None)
  Receive Date: 20160324
  Receipt Date: 20160324
  Transmission Date: 20160526
  Serious: Yes (Hospitalization)
  Sender: FDA-Public Use
  Company Number: None

PATIENT
  Age: 31 Year
  Weight: 62.6 kg

DRUGS (1)
  1. TOPIRAMATE. [Suspect]
     Active Substance: TOPIRAMATE
     Indication: MIGRAINE
     Dosage: 2 BID ORAL
     Route: 048
     Dates: start: 20160224, end: 20160310

REACTIONS (3)
  - Hypoaesthesia [None]
  - Paraesthesia [None]
  - Eye disorder [None]

NARRATIVE: CASE EVENT DATE: 20160310
